FAERS Safety Report 14012057 (Version 1)
Quarter: 2017Q3

REPORT INFORMATION
  Report Type: Spontaneous
  Country: US (occurrence: US)
  Receive Date: 20170926
  Receipt Date: 20170926
  Transmission Date: 20171128
  Serious: No
  Sender: FDA-Public Use
  Company Number: None

PATIENT
  Age: 38 Year
  Sex: Male
  Weight: 94.95 kg

DRUGS (6)
  1. ATORVASTATIN [Suspect]
     Active Substance: ATORVASTATIN
     Indication: DRUG THERAPY
     Route: 048
     Dates: start: 20170820, end: 20170902
  2. TRIUMEQ [Concomitant]
     Active Substance: ABACAVIR SULFATE\DOLUTEGRAVIR SODIUM\LAMIVUDINE
  3. LISINOPRIL. [Concomitant]
     Active Substance: LISINOPRIL
  4. ALBUTEROL. [Concomitant]
     Active Substance: ALBUTEROL
  5. ASPIRIN. [Concomitant]
     Active Substance: ASPIRIN
  6. METFORMIN [Concomitant]
     Active Substance: METFORMIN HYDROCHLORIDE

REACTIONS (1)
  - Memory impairment [None]

NARRATIVE: CASE EVENT DATE: 20170821
